FAERS Safety Report 5886703-0 (Version None)
Quarter: 2008Q3

REPORT INFORMATION
  Report Type: 
  Country: None (occurrence: None)
  Receive Date: 20080917
  Receipt Date: 20080910
  Transmission Date: 20090109
  Serious: Yes (Hospitalization, Other)
  Sender: FDA-Public Use
  Company Number: PHHY2008JP12806

PATIENT
  Sex: Female

DRUGS (16)
  1. DIOVAN [Suspect]
     Indication: HYPERTENSION
     Dosage: 80 MG, UNK
     Route: 048
     Dates: end: 20080625
  2. DIOVAN [Suspect]
     Dosage: UNK
     Route: 048
     Dates: start: 20080713
  3. NORVASC [Suspect]
     Dosage: UNK
     Dates: end: 20080625
  4. NORVASC [Suspect]
     Dosage: UNK
     Dates: start: 20080713
  5. ALLELOCK [Suspect]
     Dosage: UNK
     Route: 048
     Dates: end: 20080625
  6. ALLELOCK [Suspect]
     Dosage: UNK
     Route: 048
     Dates: start: 20080713
  7. OSTEN [Suspect]
     Dosage: 200 MG
     Route: 048
     Dates: end: 20080625
  8. OSTEN [Suspect]
     Dosage: UNK
     Dates: start: 20080713
  9. WARFARIN SODIUM [Suspect]
     Dosage: UNK
     Dates: end: 20080622
  10. LANSOPRAZOLE [Suspect]
     Dosage: UNK
     Route: 048
     Dates: end: 20080625
  11. LANSOPRAZOLE [Suspect]
     Dosage: UNK
     Route: 048
     Dates: start: 20080713
  12. PRORENAL [Suspect]
     Dosage: UNK
     Route: 048
     Dates: end: 20080625
  13. PRORENAL [Suspect]
     Dosage: UNK
     Route: 048
     Dates: start: 20080713
  14. ALPRAZOLAM [Suspect]
     Dosage: UNK
     Route: 048
     Dates: end: 20080625
  15. ALPRAZOLAM [Suspect]
     Dosage: UNK
     Route: 048
     Dates: start: 20080713
  16. ONEALFA [Suspect]
     Dosage: UNK
     Route: 048
     Dates: end: 20080625

REACTIONS (4)
  - BLOOD CREATINE PHOSPHOKINASE INCREASED [None]
  - CELLULITIS [None]
  - ERYTHEMA [None]
  - OEDEMA PERIPHERAL [None]
